FAERS Safety Report 6428457-5 (Version None)
Quarter: 2009Q4

REPORT INFORMATION
  Report Type: 
  Country: None (occurrence: None)
  Receive Date: 20091105
  Receipt Date: 20091030
  Transmission Date: 20100525
  Serious: Yes (Hospitalization)
  Sender: FDA-Public Use
  Company Number: B0598224A

PATIENT
  Age: 84 Year
  Sex: Male

DRUGS (2)
  1. VALTREX [Suspect]
     Indication: HERPES ZOSTER
     Dosage: 1000MG THREE TIMES PER DAY
     Route: 048
     Dates: start: 20090804, end: 20090811
  2. CHINESE MEDICINE [Concomitant]
     Dosage: 22.5MG PER DAY
     Route: 048
     Dates: start: 20090804, end: 20090811

REACTIONS (10)
  - ABNORMAL BEHAVIOUR [None]
  - APHASIA [None]
  - DECREASED APPETITE [None]
  - DEPRESSED LEVEL OF CONSCIOUSNESS [None]
  - DIZZINESS [None]
  - ENCEPHALOPATHY [None]
  - INCOHERENT [None]
  - MUSCULAR WEAKNESS [None]
  - RENAL IMPAIRMENT [None]
  - SOMNOLENCE [None]
